FAERS Safety Report 5245056-1 (Version None)
Quarter: 2007Q1

REPORT INFORMATION
  Report Type: 
  Country: None (occurrence: None)
  Receive Date: 20070223
  Receipt Date: 20070222
  Transmission Date: 20070707
  Serious: Yes (Death, Hospitalization)
  Sender: FDA-Public Use
  Company Number: DE-JNJFOC-20041201509

PATIENT
  Weight: 80 kg

DRUGS (28)
  1. ABCIXIMAB [Suspect]
  2. ABCIXIMAB [Suspect]
     Indication: PERCUTANEOUS CORONARY INTERVENTION
  3. HEPARIN [Concomitant]
  4. CLOPIDOGREL [Concomitant]
  5. ACETYLSALICYLIC ACID SRT [Concomitant]
  6. METOPROLOL SUCCINATE [Concomitant]
     Indication: HYPERTENSION
  7. MORPHIUM [Concomitant]
     Indication: PAIN
     Route: 042
  8. CAPTOPRIL [Concomitant]
  9. OXAZEPAM [Concomitant]
  10. FLUVASTATIN [Concomitant]
  11. POTASSIUM ACETATE [Concomitant]
  12. DOPAMIN [Concomitant]
  13. SPIRONOLACTONE [Concomitant]
  14. SODIUM CHLORIDE [Concomitant]
  15. CARVEDIOL [Concomitant]
  16. LEPIRUDIN [Concomitant]
  17. TERBUTALINE SULFATE [Concomitant]
  18. PREDNISOLONE [Concomitant]
  19. IPRATROPIUM BROMIDE [Concomitant]
  20. LENTEROL [Concomitant]
  21. FENOTEROL [Concomitant]
  22. NITROGLYCERIN [Concomitant]
  23. FUROSEMIDE [Concomitant]
  24. DIAZEPAM [Concomitant]
  25. GLIMEPIRIDE [Concomitant]
     Indication: DIABETES MELLITUS
  26. ALLOPURINOL SODIUM [Concomitant]
     Indication: HYPERURICAEMIA
  27. FELODIPINE [Concomitant]
     Indication: HYPERTENSION
  28. DIAZEPAM [Concomitant]

REACTIONS (5)
  - CARDIAC ANEURYSM [None]
  - CARDIOGENIC SHOCK [None]
  - LEFT VENTRICULAR FAILURE [None]
  - MYOCARDIAL RUPTURE [None]
  - THROMBOCYTOPENIA [None]
